FAERS Safety Report 14078986 (Version 1)
Quarter: 2017Q4

REPORT INFORMATION
  Report Type: Spontaneous
  Country: US (occurrence: US)
  Receive Date: 20171012
  Receipt Date: 20171012
  Transmission Date: 20180321
  Serious: No
  Sender: FDA-Public Use
  Company Number: US-MYLANLABS-2017M1021481

PATIENT
  Age: 72 Year
  Sex: Female

DRUGS (2)
  1. FENTANYL. [Suspect]
     Active Substance: FENTANYL
     Indication: PAIN
     Dosage: 25 ?G, QH
     Route: 062
     Dates: start: 201703, end: 201703
  2. FENTANYL. [Suspect]
     Active Substance: FENTANYL
     Dosage: 12 ?G, QH
     Route: 062
     Dates: start: 201703, end: 201703

REACTIONS (3)
  - Drug effect increased [Recovered/Resolved]
  - Dizziness [Recovered/Resolved]
  - Malaise [Recovered/Resolved]

NARRATIVE: CASE EVENT DATE: 201703
